FAERS Safety Report 8757576 (Version 2)
Quarter: 2013Q1

REPORT INFORMATION
  Report Type: Spontaneous
  Country: IE (occurrence: IE)
  Receive Date: 20120828
  Receipt Date: 20130220
  Transmission Date: 20140127
  Serious: Yes (Other)
  Sender: FDA-Public Use
  Company Number: IE-PFIZER INC-2012207127

PATIENT
  Age: 14 Year
  Sex: Male

DRUGS (2)
  1. GENOTROPIN [Suspect]
     Indication: GROWTH HORMONE DEFICIENCY
     Dosage: 1.7 MG, AT NIGHT
     Route: 058
     Dates: start: 201002, end: 201102
  2. GENOTROPIN [Suspect]
     Dosage: 1.5 MG, AT NIGHT
     Route: 058
     Dates: start: 201102

REACTIONS (2)
  - Brain teratoma [Unknown]
  - Neoplasm recurrence [Unknown]
